FAERS Safety Report 24930378 (Version 1)
Quarter: 2025Q1

REPORT INFORMATION
  Report Type: Spontaneous
  Country: US (occurrence: US)
  Receive Date: 20250205
  Receipt Date: 20250205
  Transmission Date: 20250409
  Serious: Yes (Hospitalization)
  Sender: LUNDBECK
  Company Number: US-LUNDBECK-DKLU4010325

PATIENT

DRUGS (3)
  1. SABRIL [Suspect]
     Active Substance: VIGABATRIN
     Indication: Infantile spasms
     Dosage: 3 MILLILITRE
     Route: 048
     Dates: start: 202411
  2. SABRIL [Suspect]
     Active Substance: VIGABATRIN
     Dosage: 6 MILLILITRE
     Route: 048
  3. SABRIL [Suspect]
     Active Substance: VIGABATRIN
     Dosage: 9 MILLILITRE
     Route: 048

REACTIONS (2)
  - Pneumatosis intestinalis [Unknown]
  - Respiratory syncytial virus infection [Unknown]
